FAERS Safety Report 5690653-2 (Version None)
Quarter: 2008Q1

REPORT INFORMATION
  Report Type: 
  Country: None (occurrence: None)
  Receive Date: 20080331
  Receipt Date: 20080331
  Transmission Date: 20080703
  Serious: Yes (Life-Threatening)
  Sender: FDA-Public Use
  Company Number: None

PATIENT
  Age: 6 Year
  Sex: Male
  Weight: 20.4119 kg

DRUGS (5)
  1. SINGULAIR [Suspect]
     Indication: ASTHMA
     Dosage: DAILY PO
     Route: 048
     Dates: start: 20061101, end: 20080328
  2. SINGULAIR [Suspect]
     Indication: SEASONAL ALLERGY
     Dosage: DAILY PO
     Route: 048
     Dates: start: 20061101, end: 20080328
  3. ZOPANEX [Concomitant]
  4. FLOVENT [Concomitant]
  5. CLARITIN [Concomitant]

REACTIONS (5)
  - CRYING [None]
  - DEPRESSION [None]
  - EMOTIONAL DISORDER [None]
  - MOOD ALTERED [None]
  - SUICIDAL IDEATION [None]
